FAERS Safety Report 7026151-3 (Version None)
Quarter: 2010Q4

REPORT INFORMATION
  Report Type: 
  Country: None (occurrence: None)
  Receive Date: 20101004
  Receipt Date: 20100927
  Transmission Date: 20110411
  Serious: No
  Sender: FDA-Public Use
  Company Number: US-BIOGENIDEC-2010BI033672

PATIENT
  Sex: Female

DRUGS (3)
  1. AVONEX [Suspect]
     Indication: MULTIPLE SCLEROSIS
     Route: 030
     Dates: start: 20021011
  2. AVONEX [Suspect]
     Route: 030
     Dates: start: 20060701
  3. AVONEX [Suspect]
     Route: 030
     Dates: start: 20090407, end: 20100913

REACTIONS (5)
  - CHILLS [None]
  - GAIT DISTURBANCE [None]
  - MUSCLE SPASTICITY [None]
  - TREMOR [None]
  - WHITE BLOOD CELL COUNT DECREASED [None]
